FAERS Safety Report 16168069 (Version 2)
Quarter: 2019Q2

REPORT INFORMATION
  Report Type: Spontaneous
  Country: US (occurrence: US)
  Receive Date: 20190408
  Receipt Date: 20190523
  Transmission Date: 20190711
  Serious: No
  Sender: FDA-Public Use
  Company Number: US-PFIZER INC-2016252342

PATIENT
  Age: 83 Year
  Sex: Male
  Weight: 120.2 kg

DRUGS (2)
  1. VFEND [Suspect]
     Active Substance: VORICONAZOLE
     Indication: BRONCHOPULMONARY ASPERGILLOSIS ALLERGIC
     Dosage: 200 MG, 3X/DAY
     Route: 048
  2. VFEND [Suspect]
     Active Substance: VORICONAZOLE
     Indication: ASPERGILLUS INFECTION
     Dosage: 50 MG, 2X/DAY

REACTIONS (5)
  - Product use issue [Unknown]
  - Intentional underdose [Unknown]
  - Off label use [Unknown]
  - Hypoacusis [Unknown]
  - Drug ineffective [Unknown]
